FAERS Safety Report 25032235 (Version 3)
Quarter: 2025Q2

REPORT INFORMATION
  Report Type: Spontaneous
  Country: CL (occurrence: CL)
  Receive Date: 20250303
  Receipt Date: 20250409
  Transmission Date: 20250717
  Serious: No
  Sender: PFIZER
  Company Number: CL-PFIZER INC-202500045602

PATIENT

DRUGS (3)
  1. GENOTROPIN [Suspect]
     Active Substance: SOMATROPIN
     Indication: Short stature
     Dosage: 1.7 MG, DAILY
     Dates: start: 202408
  2. CALCIUM [Concomitant]
     Active Substance: CALCIUM
  3. OMEGA 3 [Concomitant]
     Active Substance: CAPSAICIN

REACTIONS (5)
  - Product prescribing error [Unknown]
  - Poor quality device used [Recovered/Resolved]
  - Device leakage [Recovered/Resolved]
  - Device issue [Recovered/Resolved]
  - Device breakage [Recovered/Resolved]

NARRATIVE: CASE EVENT DATE: 20240801
